FAERS Safety Report 5140675-5 (Version None)
Quarter: 2006Q4

REPORT INFORMATION
  Report Type: 
  Country: None (occurrence: None)
  Receive Date: 20061025
  Receipt Date: 20061012
  Transmission Date: 20070319
  Serious: Yes (Disabling)
  Sender: FDA-Public Use
  Company Number: 2006095095

PATIENT
  Age: 49 Year
  Sex: Female
  Weight: 37 kg

DRUGS (16)
  1. VFEND [Suspect]
     Indication: PNEUMONIA
     Dosage: 400 MG, ORAL
     Route: 048
     Dates: start: 20060724
  2. MYCOSYST (FLUCONAZOLE) [Suspect]
     Dosage: ORAL
     Route: 048
  3. SULFAMETHOXAZOLE + TRIMETHOPRIM [Concomitant]
  4. PURSENNID (SENNA LEAF) [Concomitant]
  5. MAGNESIUM OXIDE (MAGNESIUM OXIDE) [Concomitant]
  6. MUCOSOLVAN (AMBROXOL HYDROCHLORIDE) [Concomitant]
  7. MUCODYNE (CARBOCISTEINE) [Concomitant]
  8. BROCIN (WILD CHERRY BARK) [Concomitant]
  9. DEXTROMETHORPHAN HYDROBROMIDE [Concomitant]
  10. LANSOPRAZOLE [Concomitant]
  11. LASIX [Concomitant]
  12. ZANTAC [Concomitant]
  13. NEUTROGIN (LENOGRASTIM) [Concomitant]
  14. MEROPEN (MEROPENEM) [Concomitant]
  15. MORPHINE [Concomitant]
  16. PLATELETS [Concomitant]

REACTIONS (4)
  - DRUG ERUPTION [None]
  - HAEMORRHAGE [None]
  - MACULAR OEDEMA [None]
  - VISUAL ACUITY REDUCED [None]
